FAERS Safety Report 11112016 (Version 1)
Quarter: 2015Q2

REPORT INFORMATION
  Report Type: Spontaneous
  Country: US (occurrence: None)
  Receive Date: 20150513
  Receipt Date: 20150513
  Transmission Date: 20150821
  Serious: Yes (Disabling, Other)
  Sender: FDA-Public Use
  Company Number: None

PATIENT
  Age: 71 Year
  Sex: Female
  Weight: 65.77 kg

DRUGS (15)
  1. HYDROCODONE/ACETAMINOPHEN [Concomitant]
     Active Substance: ACETAMINOPHEN\HYDROCODONE
  2. ALENDRONATE SODIUM. [Concomitant]
     Active Substance: ALENDRONATE SODIUM
  3. FLONASE [Concomitant]
     Active Substance: FLUTICASONE PROPIONATE
  4. LIPITOR [Concomitant]
     Active Substance: ATORVASTATIN CALCIUM
  5. MAXALT-MLT SPIRIVA HANDI HALER [Concomitant]
  6. TEMAZEPAM. [Concomitant]
     Active Substance: TEMAZEPAM
  7. CALCIUM WITH D [Concomitant]
     Active Substance: CALCIUM\VITAMIN D
  8. MECLIZINE [Concomitant]
     Active Substance: MECLIZINE\MECLIZINE HYDROCHLORIDE
  9. XOPENEX [Concomitant]
     Active Substance: LEVALBUTEROL HYDROCHLORIDE
  10. TRAZONW HCL [Concomitant]
  11. DULOXETINE HYDROCHLORIDE. [Concomitant]
     Active Substance: DULOXETINE HYDROCHLORIDE
  12. DULOXETINE HCL [Suspect]
     Active Substance: DULOXETINE HYDROCHLORIDE
     Indication: DEPRESSION
     Dosage: 3 CAPS ?ONCE DAILY?TAKEN BY MOUTH
     Route: 048
     Dates: start: 20141101, end: 20150512
  13. SINGULAIR [Concomitant]
     Active Substance: MONTELUKAST SODIUM
  14. ASTELIN [Concomitant]
     Active Substance: AZELASTINE HYDROCHLORIDE
  15. MULTI VITAMINIS WITH IRON [Concomitant]

REACTIONS (2)
  - Arthralgia [None]
  - Product substitution issue [None]
